FAERS Safety Report 4514122-8 (Version None)
Quarter: 2004Q4

REPORT INFORMATION
  Report Type: 
  Country: None (occurrence: None)
  Receive Date: 20041124
  Receipt Date: 20041025
  Transmission Date: 20050328
  Serious: Yes (Other)
  Sender: FDA-Public Use
  Company Number: DE-2004-029100

PATIENT
  Sex: Male

DRUGS (4)
  1. QUADRAMER(SAMARIUM SM 153 (EDTMP)) INJECTION [Suspect]
     Indication: MULTIPLE MYELOMA
     Dosage: 0
  2. AMINOGLYCOSIDE ANTIBACTERIALS() [Suspect]
  3. AMPHOTERICIN B [Suspect]
  4. MELPHALAN (MELPHALAN) [Concomitant]

REACTIONS (2)
  - HEPATOTOXICITY [None]
  - RENAL FAILURE [None]
